FAERS Safety Report 22607798 (Version 1)
Quarter: 2023Q2

REPORT INFORMATION
  Report Type: Spontaneous
  Country: US (occurrence: US)
  Receive Date: 20230616
  Receipt Date: 20230616
  Transmission Date: 20230722
  Serious: No
  Sender: FDA-Public Use
  Company Number: A22AP4456

PATIENT
  Sex: Female

DRUGS (1)
  1. FAMOTIDINE [Suspect]
     Active Substance: FAMOTIDINE
     Indication: Antacid therapy
     Dosage: UNK
     Route: 065

REACTIONS (2)
  - Discomfort [Unknown]
  - Drug ineffective [Unknown]
